FAERS Safety Report 4955253-8 (Version None)
Quarter: 2006Q1

REPORT INFORMATION
  Report Type: 
  Country: None (occurrence: None)
  Receive Date: 20060322
  Receipt Date: 20060308
  Transmission Date: 20060701
  Serious: Yes (Hospitalization)
  Sender: FDA-Public Use
  Company Number: 2006-BP-02619RO

PATIENT
  Age: 17 Year
  Sex: Female

DRUGS (17)
  1. PREDNISONE TAB [Suspect]
     Dosage: 5 MG
  2. PULMINIQ [Suspect]
     Indication: LUNG TRANSPLANT
     Dosage: (300/4.8 MG/ML) 300 MG 3 X WEEK M, W, F VIA INHALATION (SEE TEXT, 3 IN 1 WK), IH
     Route: 055
     Dates: start: 20050509, end: 20060113
  3. PROGRAF [Suspect]
     Dosage: 4.5 MG BID (4.5 MG), PO
     Route: 048
     Dates: start: 20040101
  4. CELLCEPT [Suspect]
     Dosage: 1000 MG BID (250 MG), PO
     Route: 048
  5. ACYCLOVIR [Suspect]
     Dosage: 800 MG BID (800 MG), PO
     Route: 048
  6. BACTRIM DS [Concomitant]
  7. AZITHROMYCIN [Concomitant]
  8. ASCORBIC ACID [Concomitant]
  9. ASPIRIN [Concomitant]
  10. LANSOPRAZOLE [Concomitant]
  11. ALBUTEROL [Concomitant]
  12. PULMOZYME [Concomitant]
  13. PERCOCET [Concomitant]
  14. MIRALAX [Concomitant]
  15. ZOFRAN [Concomitant]
  16. NYSTATIN [Concomitant]
  17. PULMICORT [Concomitant]

REACTIONS (8)
  - INSOMNIA [None]
  - LUNG INFILTRATION [None]
  - ORAL INTAKE REDUCED [None]
  - PNEUMONIA RESPIRATORY SYNCYTIAL VIRAL [None]
  - PNEUMOTHORAX TRAUMATIC [None]
  - PROCEDURAL PAIN [None]
  - RESPIRATORY FAILURE [None]
  - VOMITING [None]
